FAERS Safety Report 11475536 (Version 2)
Quarter: 2015Q4

REPORT INFORMATION
  Report Type: Spontaneous
  Country: US (occurrence: US)
  Receive Date: 20150909
  Receipt Date: 20151008
  Transmission Date: 20160304
  Serious: No
  Sender: FDA-Public Use
  Company Number: US-ACTELION PHARMACEUTICALS US, INC.-A-NJ2015-117727

PATIENT
  Age: 44 Year
  Sex: Female

DRUGS (3)
  1. VALCHLOR [Suspect]
     Active Substance: MECHLORETHAMINE
     Indication: MYCOSIS FUNGOIDES
     Dosage: UNK
     Route: 061
     Dates: start: 20150404
  2. ALLEGRA [Concomitant]
     Active Substance: FEXOFENADINE HYDROCHLORIDE
  3. METHOXSALEN. [Concomitant]
     Active Substance: METHOXSALEN

REACTIONS (8)
  - Hyperhidrosis [Unknown]
  - Urticaria [Recovered/Resolved]
  - Pruritus [Unknown]
  - Vomiting [Unknown]
  - Pain of skin [Unknown]
  - Dysgeusia [Recovering/Resolving]
  - Photophobia [Unknown]
  - Skin discolouration [Unknown]
